FAERS Safety Report 11847409 (Version 1)
Quarter: 2015Q4

REPORT INFORMATION
  Report Type: Spontaneous
  Country: US (occurrence: US)
  Receive Date: 20151217
  Receipt Date: 20151217
  Transmission Date: 20160305
  Serious: No
  Sender: FDA-Public Use
  Company Number: US-ROCHE-1511054

PATIENT
  Age: 5 Year
  Sex: Male

DRUGS (3)
  1. AMOXIL [Concomitant]
     Active Substance: AMOXICILLIN
     Indication: LOWER RESPIRATORY TRACT INFECTION
     Route: 048
     Dates: start: 20141217, end: 20141227
  2. TAMIFLU [Suspect]
     Active Substance: OSELTAMIVIR PHOSPHATE
     Indication: LOWER RESPIRATORY TRACT INFECTION
     Route: 048
     Dates: start: 20141217, end: 20141218
  3. TAMIFLU [Suspect]
     Active Substance: OSELTAMIVIR PHOSPHATE
     Indication: INFLUENZA
     Dosage: 7.5 ML EVERY 12 HOURS FOR 5 DAYS
     Route: 048
     Dates: start: 20141217, end: 20141217

REACTIONS (5)
  - Rash erythematous [Recovered/Resolved]
  - Rash macular [Recovered/Resolved]
  - Pruritus [Recovered/Resolved]
  - Rash erythematous [Recovered/Resolved]
  - Pruritus [Recovered/Resolved]

NARRATIVE: CASE EVENT DATE: 20141217
